FAERS Safety Report 9290522 (Version 1)
Quarter: 2013Q2

REPORT INFORMATION
  Report Type: Report from Study
  Country: DE (occurrence: DE)
  Receive Date: 20130515
  Receipt Date: 20130515
  Transmission Date: 20140414
  Serious: Yes (Hospitalization)
  Sender: FDA-Public Use
  Company Number: DE-ROCHE-1039280

PATIENT
  Age: 77 Year
  Sex: Female
  Weight: 55 kg

DRUGS (11)
  1. TRASTUZUMAB EMTANSINE [Suspect]
     Indication: BREAST CANCER METASTATIC
     Route: 042
     Dates: start: 20120207
  2. BLINDED PERTUZUMAB [Suspect]
     Indication: BREAST CANCER METASTATIC
     Dosage: RECENT DOSE ON 07/FEB/2012
     Route: 042
     Dates: start: 20120207
  3. TRASTUZUMAB [Suspect]
     Indication: BREAST CANCER METASTATIC
     Route: 042
     Dates: start: 20130115
  4. JODETTEN [Concomitant]
     Indication: IODINE DEFICIENCY
     Route: 065
     Dates: start: 2010
  5. MST [Concomitant]
     Indication: PAIN
     Route: 065
     Dates: start: 20120209, end: 20120214
  6. MOVICOL [Concomitant]
     Indication: PROPHYLAXIS
     Route: 065
     Dates: start: 20120210, end: 20120212
  7. NOVAMINSULFON [Concomitant]
     Indication: PAIN
     Route: 065
     Dates: start: 20120209, end: 20120214
  8. CLEXANE [Concomitant]
     Indication: PROPHYLAXIS
     Dosage: DRUG NAME: CLEXANE 40
     Route: 065
     Dates: start: 20120209, end: 20120214
  9. TAZOBAC [Concomitant]
     Indication: PNEUMONIA
     Dosage: DRUG INDICATION: PNEUMONIA BOTH SIDES
     Route: 065
     Dates: start: 20120209, end: 20120213
  10. PASPERTIN [Concomitant]
     Indication: NAUSEA
     Route: 065
     Dates: start: 20120209, end: 20120214
  11. PANTOZOL [Concomitant]
     Indication: PROPHYLAXIS
     Route: 065
     Dates: start: 20120209, end: 20120214

REACTIONS (1)
  - Syncope [Recovered/Resolved]
